FAERS Safety Report 13494820 (Version 2)
Quarter: 2017Q2

REPORT INFORMATION
  Report Type: Spontaneous
  Country: US (occurrence: US)
  Receive Date: 20170428
  Receipt Date: 20170522
  Transmission Date: 20170830
  Serious: No
  Sender: FDA-Public Use
  Company Number: US-PFIZER INC-2017186040

PATIENT
  Age: 53 Year
  Sex: Female

DRUGS (1)
  1. ESTRING [Suspect]
     Active Substance: ESTRADIOL
     Indication: VULVOVAGINAL DRYNESS
     Dosage: UNK

REACTIONS (3)
  - Vulvovaginal discomfort [Recovered/Resolved]
  - Drug ineffective [Recovered/Resolved]
  - Vulvovaginal burning sensation [Recovered/Resolved]
